FAERS Safety Report 16572463 (Version 5)
Quarter: 2019Q3

REPORT INFORMATION
  Report Type: Report from Study
  Country: JP (occurrence: JP)
  Receive Date: 20190715
  Receipt Date: 20190918
  Transmission Date: 20191004
  Serious: Yes (Hospitalization)
  Sender: FDA-Public Use
  Company Number: JP-JNJFOC-20190706190

PATIENT
  Age: 71 Year
  Sex: Male
  Weight: 63 kg

DRUGS (17)
  1. TREMFYA [Suspect]
     Active Substance: GUSELKUMAB
     Indication: PSORIASIS
     Dosage: GUSELKUMAB (GENETICAL RECOMBINATION):100MG
     Route: 058
     Dates: start: 20190328
  2. CELECOX [Concomitant]
     Active Substance: CELECOXIB
     Indication: SPINAL STENOSIS
     Dosage: UNKNOWN
     Route: 048
  3. AMLODIPINE;IRBESARTAN [Concomitant]
     Indication: HYPERTENSION
     Dosage: UNKNOWN
     Route: 048
  4. MIGLITOL. [Concomitant]
     Active Substance: MIGLITOL
     Indication: DIABETES MELLITUS
     Dosage: UNKNOWN
     Route: 048
  5. PROTOPIC [Concomitant]
     Active Substance: TACROLIMUS
     Indication: PSORIASIS
  6. FENOFIBRATE. [Concomitant]
     Active Substance: FENOFIBRATE
     Indication: HYPERLIPIDAEMIA
     Dosage: UNKNOWN
     Route: 048
  7. GLACTIV [Concomitant]
     Active Substance: SITAGLIPTIN
     Indication: DIABETES MELLITUS
     Dosage: UNKNOWN
     Route: 048
  8. REBAMIPIDE [Concomitant]
     Active Substance: REBAMIPIDE
     Indication: PROPHYLAXIS
     Dosage: UNKNOWN
     Route: 048
  9. GLIMICRON [Concomitant]
     Active Substance: GLICLAZIDE
     Indication: DIABETES MELLITUS
     Dosage: UNKNOWN
     Route: 048
  10. BUFFERIN [Concomitant]
     Active Substance: ASPIRIN
     Indication: SPINAL STENOSIS
     Dosage: UNKNOWN
     Route: 048
  11. DOVOBET [Concomitant]
     Active Substance: BETAMETHASONE\CALCIPOTRIENE
     Indication: PSORIASIS
     Dosage: UNKNOWN, Q.S.
     Route: 061
  12. LIMAPROST ALFADEX [Concomitant]
     Active Substance: LIMAPROST
     Indication: SPINAL STENOSIS
     Dosage: UNKNOWN
     Route: 048
  13. LYRICA [Concomitant]
     Active Substance: PREGABALIN
     Indication: SPINAL STENOSIS
     Dosage: UNKNOWN
     Route: 048
  14. PROPETO [Concomitant]
     Active Substance: PETROLATUM
     Indication: PSORIASIS
     Dosage: UNKNOWN, Q.S.
     Route: 061
  15. ANTEBATE [Concomitant]
     Active Substance: BETAMETHASONE DIPROPIONATE
     Indication: PSORIASIS
     Dosage: UNKNOWN, Q.S.
     Route: 061
  16. EPLERENONE. [Concomitant]
     Active Substance: EPLERENONE
     Indication: DIABETES MELLITUS
     Dosage: UNKNOWN
     Route: 048
  17. SODIUM RABEPRAZOLE [Concomitant]
     Active Substance: RABEPRAZOLE SODIUM
     Indication: PROPHYLAXIS
     Dosage: UNKNOWN
     Route: 048

REACTIONS (3)
  - Pyrexia [Recovered/Resolved]
  - Hyponatraemia [Recovered/Resolved]
  - Enteritis infectious [Recovered/Resolved]

NARRATIVE: CASE EVENT DATE: 20190407
